FAERS Safety Report 9738957 (Version 13)
Quarter: 2014Q3

REPORT INFORMATION
  Report Type: Spontaneous
  Country: US (occurrence: US)
  Receive Date: 20131209
  Receipt Date: 20140728
  Transmission Date: 20150326
  Serious: Yes (Hospitalization, Other)
  Sender: FDA-Public Use
  Company Number: PHEH2009US019110

PATIENT
  Sex: Male
  Weight: 80.73 kg

DRUGS (34)
  1. ROCEPHIN [Concomitant]
     Active Substance: CEFTRIAXONE SODIUM
  2. MESNA. [Concomitant]
     Active Substance: MESNA
  3. AVAPRO [Concomitant]
     Active Substance: IRBESARTAN
  4. LYRICA [Concomitant]
     Active Substance: PREGABALIN
  5. ACETAMINOPHEN. [Concomitant]
     Active Substance: ACETAMINOPHEN
  6. HYDROCHLOROTHIAZIDE. [Concomitant]
     Active Substance: HYDROCHLOROTHIAZIDE
  7. PERIOGARD [Concomitant]
     Active Substance: CHLORHEXIDINE GLUCONATE
  8. NEUPOGEN [Concomitant]
     Active Substance: FILGRASTIM
     Dosage: 10 MG, UNK
  9. CLEOCIN [Concomitant]
     Active Substance: CLINDAMYCIN PHOSPHATE
  10. CHEMOTHERAPEUTICS NOS [Concomitant]
     Active Substance: UNSPECIFIED INGREDIENT
  11. HYZAAR [Concomitant]
     Active Substance: HYDROCHLOROTHIAZIDE\LOSARTAN POTASSIUM
  12. ZOMETA [Suspect]
     Active Substance: ZOLEDRONIC ACID
     Indication: PLASMA CELL MYELOMA
     Dosage: UNK UKN, UNK
     Route: 042
     Dates: start: 200101, end: 2005
  13. VELCADE [Concomitant]
     Active Substance: BORTEZOMIB
  14. DEXAMETHASONE. [Concomitant]
     Active Substance: DEXAMETHASONE
  15. BORTEZOMIB [Concomitant]
     Active Substance: BORTEZOMIB
  16. PROCHLORPERAZINE. [Concomitant]
     Active Substance: PROCHLORPERAZINE
  17. DECADRON [Concomitant]
     Active Substance: DEXAMETHASONE
  18. OSCAL [Concomitant]
     Active Substance: CALCIUM CARBONATE
  19. AREDIA [Suspect]
     Active Substance: PAMIDRONATE DISODIUM
     Indication: PLASMA CELL MYELOMA
     Dosage: 90 MG, QMO
     Route: 042
     Dates: start: 199710, end: 200806
  20. REVLIMID [Concomitant]
     Active Substance: LENALIDOMIDE
  21. ALLEGRA [Concomitant]
     Active Substance: FEXOFENADINE HYDROCHLORIDE
  22. AVALIDE [Concomitant]
     Active Substance: HYDROCHLOROTHIAZIDE\IRBESARTAN
     Dosage: 150 MG,
  23. VIAGRA [Concomitant]
     Active Substance: SILDENAFIL CITRATE
  24. BACTRIM [Concomitant]
     Active Substance: SULFAMETHOXAZOLE\TRIMETHOPRIM
  25. DOXIL [Concomitant]
     Active Substance: DOXORUBICIN HYDROCHLORIDE
  26. OXYCODONE [Concomitant]
     Active Substance: OXYCODONE
  27. NASACORT [Concomitant]
     Active Substance: TRIAMCINOLONE ACETONIDE
  28. ZITHROMAX ^HEINRICH MACK^ [Concomitant]
  29. BETAMETHASONE [Concomitant]
     Active Substance: BETAMETHASONE
  30. VIOXX [Concomitant]
     Active Substance: ROFECOXIB
  31. XANAX [Concomitant]
     Active Substance: ALPRAZOLAM
  32. ALPRAZOLAM. [Concomitant]
     Active Substance: ALPRAZOLAM
  33. PRILOSEC [Concomitant]
     Active Substance: OMEPRAZOLE MAGNESIUM
     Dosage: 20 MG, UNK
  34. DOLASETRON [Concomitant]
     Active Substance: DOLASETRON

REACTIONS (200)
  - Injury [Unknown]
  - Bone disorder [Unknown]
  - Hypophagia [Unknown]
  - Sensory loss [Unknown]
  - Protein urine [Unknown]
  - Tooth loss [Unknown]
  - Diverticulum [Unknown]
  - Haemorrhage [Unknown]
  - Skin lesion [Unknown]
  - Blister infected [Unknown]
  - Tinea pedis [Unknown]
  - Peripheral vascular disorder [Unknown]
  - Hypertension [Unknown]
  - Primary sequestrum [Unknown]
  - Synovitis [Unknown]
  - Bile duct obstruction [Unknown]
  - Clavicle fracture [Unknown]
  - Radiculopathy [Unknown]
  - Flank pain [Unknown]
  - Cholecystitis [Unknown]
  - Presbyoesophagus [Unknown]
  - Joint stiffness [Unknown]
  - Transaminases increased [Unknown]
  - Movement disorder [Unknown]
  - Hypoaesthesia [Unknown]
  - Faeces discoloured [Unknown]
  - Hypokalaemia [Unknown]
  - Escherichia bacteraemia [Unknown]
  - Swelling face [Unknown]
  - Pain [Unknown]
  - Deformity [Unknown]
  - Plasma cell myeloma [Unknown]
  - Bone lesion [Unknown]
  - Device related infection [Unknown]
  - Pancreatic cyst [Unknown]
  - Oral herpes [Unknown]
  - Sexual dysfunction [Unknown]
  - Cataract [Unknown]
  - Body tinea [Unknown]
  - Skin hyperpigmentation [Unknown]
  - Vision blurred [Unknown]
  - Diabetes mellitus [Unknown]
  - Hypogammaglobulinaemia [Unknown]
  - Joint effusion [Unknown]
  - Osteosclerosis [Unknown]
  - Pulmonary calcification [Unknown]
  - Respiratory failure [Unknown]
  - Thrombocytopenia [Unknown]
  - Scleral haemorrhage [Unknown]
  - Ecchymosis [Unknown]
  - Bladder diverticulum [Unknown]
  - Cardiomegaly [Unknown]
  - Lung infiltration [Recovered/Resolved]
  - Abdominal discomfort [Unknown]
  - Hypomagnesaemia [Unknown]
  - Renal failure chronic [Unknown]
  - Chromaturia [Unknown]
  - Osteonecrosis of jaw [Unknown]
  - Impaired healing [Unknown]
  - Productive cough [Unknown]
  - Haematuria [Unknown]
  - Fibrous histiocytoma [Unknown]
  - Onychomycosis [Unknown]
  - Cervicobrachial syndrome [Unknown]
  - Myalgia [Unknown]
  - Neuropathy peripheral [Unknown]
  - Rash [Unknown]
  - Visual impairment [Unknown]
  - Renal cyst [Unknown]
  - Fall [Unknown]
  - Atelectasis [Unknown]
  - Osteomyelitis [Unknown]
  - Prostatic calcification [Unknown]
  - Wound infection [Unknown]
  - Spinal deformity [Unknown]
  - Prostatomegaly [Unknown]
  - Pelvic pain [Unknown]
  - Sinus congestion [Unknown]
  - Lentigo [Unknown]
  - Melanocytic naevus [Unknown]
  - Bronchitis [Unknown]
  - Anxiety [Unknown]
  - Immunosuppression [Unknown]
  - Nephrolithiasis [Unknown]
  - Arteriosclerosis coronary artery [Unknown]
  - Rash erythematous [Unknown]
  - Hyperkeratosis [Unknown]
  - Tooth fracture [Unknown]
  - Pancreatic atrophy [Unknown]
  - Sepsis [Unknown]
  - Colitis [Unknown]
  - Mitral valve incompetence [Unknown]
  - Basal cell carcinoma [Unknown]
  - Neutropenia [Unknown]
  - Neoplasm prostate [Unknown]
  - Skin disorder [Unknown]
  - Squamous cell carcinoma [Unknown]
  - Gastrointestinal carcinoma [Unknown]
  - Nephrogenic anaemia [Unknown]
  - Renal disorder [Unknown]
  - Spinal osteoarthritis [Unknown]
  - Pain in jaw [Unknown]
  - Renal failure acute [Unknown]
  - Ulcer [Unknown]
  - Decreased appetite [Unknown]
  - Osteoporosis [Unknown]
  - Lumbar spinal stenosis [Unknown]
  - Rotator cuff syndrome [Unknown]
  - Skin ulcer [Recovering/Resolving]
  - Benign prostatic hyperplasia [Unknown]
  - Pleural effusion [Unknown]
  - Aortic arteriosclerosis [Unknown]
  - Tricuspid valve incompetence [Unknown]
  - Coronary artery disease [Unknown]
  - Depression [Unknown]
  - Urticaria [Unknown]
  - Chronic sinusitis [Unknown]
  - Wound [Unknown]
  - Diverticular perforation [Unknown]
  - Febrile neutropenia [Unknown]
  - Joint range of motion decreased [Unknown]
  - Seborrhoeic keratosis [Unknown]
  - Pneumonia [Unknown]
  - Pancreatic mass [Unknown]
  - Orthostatic hypotension [Unknown]
  - Sinusitis [Unknown]
  - Body temperature increased [Unknown]
  - Ligament sprain [Unknown]
  - Proteinuria [Unknown]
  - Diverticulitis [Unknown]
  - Peritonitis [Unknown]
  - Osteolysis [Unknown]
  - Gait disturbance [Unknown]
  - Decubitus ulcer [Unknown]
  - Gastrooesophageal reflux disease [Unknown]
  - Osteoarthropathy [Unknown]
  - Interstitial lung disease [Unknown]
  - Prostate induration [Unknown]
  - Large intestine perforation [Unknown]
  - Discomfort [Unknown]
  - Cystitis glandularis [Unknown]
  - Insomnia [Unknown]
  - Leukopenia [Unknown]
  - Deep vein thrombosis [Unknown]
  - Purulent discharge [Unknown]
  - Lymphadenopathy [Unknown]
  - Intervertebral disc compression [Unknown]
  - Upper respiratory tract infection [Unknown]
  - Musculoskeletal pain [Unknown]
  - Tongue ulceration [Unknown]
  - Intervertebral disc protrusion [Unknown]
  - Back pain [Unknown]
  - Rash pruritic [Recovered/Resolved]
  - Blood pressure increased [Unknown]
  - Diplopia [Unknown]
  - Facet joint syndrome [Unknown]
  - Renal mass [Unknown]
  - Urinary tract obstruction [Unknown]
  - Pulmonary granuloma [Unknown]
  - Haemorrhoids [Unknown]
  - Pulmonary mass [Unknown]
  - Urinary tract infection [Unknown]
  - Thoracic vertebral fracture [Unknown]
  - Diarrhoea [Unknown]
  - Glycosuria [Unknown]
  - Hypophosphataemia [Unknown]
  - Abdominal mass [Unknown]
  - Peripheral swelling [Unknown]
  - Skin cancer [Unknown]
  - Nocturia [Unknown]
  - Gastrointestinal haemorrhage [Unknown]
  - Influenza [Unknown]
  - Pyrexia [Unknown]
  - Mastication disorder [Unknown]
  - Haemangioma of liver [Unknown]
  - Osteopenia [Unknown]
  - Gastritis [Unknown]
  - Spinal compression fracture [Unknown]
  - Osteoarthritis [Unknown]
  - Macular degeneration [Unknown]
  - Erythema [Unknown]
  - Coagulopathy [Unknown]
  - Exposed bone in jaw [Unknown]
  - Hepatic cyst [Unknown]
  - Dehydration [Unknown]
  - Bronchospasm [Unknown]
  - Vertebral foraminal stenosis [Unknown]
  - Staphylococcal infection [Unknown]
  - Large intestine polyp [Unknown]
  - Retinopathy [Unknown]
  - Tremor [Unknown]
  - Furuncle [Unknown]
  - Spinal pain [Unknown]
  - Hepatic steatosis [Unknown]
  - Dysphagia [Unknown]
  - Oedema [Unknown]
  - Dyspnoea exertional [Unknown]
  - Hepatic calcification [Unknown]
  - Second primary malignancy [Unknown]
  - Impaired self-care [Unknown]
